FAERS Safety Report 8224919-9 (Version None)
Quarter: 2012Q1

REPORT INFORMATION
  Report Type: 
  Country: None (occurrence: None)
  Receive Date: 20120319
  Receipt Date: 20120308
  Transmission Date: 20120608
  Serious: Yes (Death)
  Sender: FDA-Public Use
  Company Number: 2012-0494

PATIENT
  Age: 51 Year
  Sex: Male

DRUGS (2)
  1. SOMATULINE AUTOGEL 90 MG(LANREOTIDE AUTOGEL) (LANREOTIDE) (LANREOTIDE [Suspect]
     Indication: PRODUCT USED FOR UNKNOWN INDICATION
     Dosage: 90 MG (90 MG, 1 IN 18 D), SUBCUTANEOUS
     Route: 058
     Dates: start: 20100329
  2. SUNITINIB MALATE (OTHE RCHEMOTHERAPEUTICS) [Concomitant]

REACTIONS (4)
  - DYSPNOEA [None]
  - SKIN DISCOLOURATION [None]
  - RENAL FAILURE [None]
  - ABDOMINAL DISTENSION [None]
